FAERS Safety Report 4505358-0 (Version None)
Quarter: 2004Q4

REPORT INFORMATION
  Report Type: 
  Country: None (occurrence: None)
  Receive Date: 20041118
  Receipt Date: 20041118
  Transmission Date: 20050328
  Serious: Yes (Other)
  Sender: FDA-Public Use
  Company Number: None

PATIENT
  Age: 44 Year
  Sex: Female
  Weight: 64.184 kg

DRUGS (10)
  1. OMALIZUMAB (NOVARTIS) 150 MG Q4 WEEK [Suspect]
     Indication: ASTHMA
     Dosage: 150 MG Q 4 WK SC
     Route: 058
     Dates: start: 20040715, end: 20041008
  2. ALBUTEROL [Concomitant]
  3. LIPITOR [Concomitant]
  4. FOLTEX [Concomitant]
  5. ASPIRIN [Concomitant]
  6. MULTI-VITAMIN [Concomitant]
  7. EXCEDRIN (MIGRAINE) [Concomitant]
  8. SUDAFED S.A. [Concomitant]
  9. PROZAC [Concomitant]
  10. KAVIRA [Concomitant]

REACTIONS (2)
  - DEVICE FAILURE [None]
  - PREGNANCY [None]
